FAERS Safety Report 10699205 (Version 1)
Quarter: 2015Q1

REPORT INFORMATION
  Report Type: Spontaneous
  Country: US (occurrence: US)
  Receive Date: 20150108
  Receipt Date: 20150108
  Transmission Date: 20150721
  Serious: Yes (Hospitalization, Other)
  Sender: FDA-Public Use
  Company Number: US-TEVA-533055USA

PATIENT
  Sex: Male

DRUGS (2)
  1. COPAXONE [Suspect]
     Active Substance: GLATIRAMER ACETATE
     Indication: MULTIPLE SCLEROSIS
     Dosage: UNKNOWN FORM STRENGTH
  2. TYSABRI [Concomitant]
     Active Substance: NATALIZUMAB
     Route: 065
     Dates: start: 20120130, end: 20130118

REACTIONS (2)
  - Fall [Unknown]
  - Paralysis [Unknown]

NARRATIVE: CASE EVENT DATE: 2010
